FAERS Safety Report 12162082 (Version 2)
Quarter: 2016Q2

REPORT INFORMATION
  Report Type: Spontaneous
  Country: JP (occurrence: JP)
  Receive Date: 20160309
  Receipt Date: 20160407
  Transmission Date: 20160815
  Serious: Yes (Other)
  Sender: FDA-Public Use
  Company Number: PHJP2016JP004446

PATIENT
  Age: 43 Year
  Sex: Male
  Weight: 100 kg

DRUGS (2)
  1. COSENTYX [Suspect]
     Active Substance: SECUKINUMAB
     Indication: ERYTHRODERMIC PSORIASIS
     Dosage: 300 MG, QW
     Route: 058
     Dates: start: 20150821
  2. COSENTYX [Suspect]
     Active Substance: SECUKINUMAB
     Dosage: 300 MG, QMO
     Route: 058
     Dates: start: 20150918

REACTIONS (4)
  - Hyperglycaemia [Not Recovered/Not Resolved]
  - Glucose urine present [Unknown]
  - Off label use [Unknown]
  - Glycosylated haemoglobin increased [Not Recovered/Not Resolved]

NARRATIVE: CASE EVENT DATE: 20160129
